FAERS Safety Report 20050289 (Version 1)
Quarter: 2021Q4

REPORT INFORMATION
  Report Type: Spontaneous
  Country: CA (occurrence: CA)
  Receive Date: 20211109
  Receipt Date: 20211109
  Transmission Date: 20220303
  Serious: Yes (Hospitalization)
  Sender: FDA-Public Use
  Company Number: CA-NAPPMUNDI-GBR-2021-0092286

PATIENT
  Age: 67 Year
  Sex: Male

DRUGS (1)
  1. HYDROMORPHONE [Suspect]
     Active Substance: HYDROMORPHONE
     Indication: Cancer pain
     Dosage: 6 MG, 2 EVERY 1 DAY
     Route: 048

REACTIONS (2)
  - Intestinal obstruction [Recovered/Resolved]
  - Constipation [Recovered/Resolved]
